FAERS Safety Report 23776606 (Version 1)
Quarter: 2024Q2

REPORT INFORMATION
  Report Type: Spontaneous
  Country: US (occurrence: US)
  Receive Date: 20240424
  Receipt Date: 20240424
  Transmission Date: 20240716
  Serious: No
  Sender: FDA-Public Use
  Company Number: US-UCBSA-2024004736

PATIENT

DRUGS (1)
  1. BIMZELX [Suspect]
     Active Substance: BIMEKIZUMAB-BKZX
     Indication: Psoriasis
     Dosage: UNK

REACTIONS (10)
  - Psoriasis [Unknown]
  - Rash [Unknown]
  - Pain in extremity [Unknown]
  - Skin atrophy [Unknown]
  - Skin fissures [Unknown]
  - Skin discolouration [Unknown]
  - Movement disorder [Unknown]
  - Gait disturbance [Unknown]
  - Feeling abnormal [Unknown]
  - Discomfort [Unknown]
